FAERS Safety Report 5841234-9 (Version None)
Quarter: 2008Q3

REPORT INFORMATION
  Report Type: 
  Country: None (occurrence: None)
  Receive Date: 20080812
  Receipt Date: 20080804
  Transmission Date: 20090109
  Serious: Yes (Other)
  Sender: FDA-Public Use
  Company Number: PHHY2008AT15624

PATIENT
  Sex: Female

DRUGS (1)
  1. SEQUIDOT [Suspect]
     Indication: PREMATURE MENOPAUSE

REACTIONS (6)
  - HEPATIC PAIN [None]
  - MENORRHAGIA [None]
  - METRORRHAGIA [None]
  - SKIN EXFOLIATION [None]
  - SKIN IRRITATION [None]
  - WEIGHT INCREASED [None]
